FAERS Safety Report 7057219-3 (Version None)
Quarter: 2010Q4

REPORT INFORMATION
  Report Type: 
  Country: None (occurrence: None)
  Receive Date: 20101022
  Receipt Date: 20090113
  Transmission Date: 20110411
  Serious: No
  Sender: FDA-Public Use
  Company Number: US-KINGPHARMUSA00001-K200900023

PATIENT
  Sex: Female

DRUGS (3)
  1. MENEST [Suspect]
     Indication: OESTROGEN REPLACEMENT THERAPY
     Dosage: 3 MG, QD
     Route: 048
     Dates: start: 20081001
  2. MENEST [Suspect]
     Indication: MENOPAUSE
  3. ANTIHYPERTENSIVES [Suspect]
     Indication: HYPERTENSION
     Dosage: UNK

REACTIONS (1)
  - ALOPECIA [None]
